FAERS Safety Report 5708292-3 (Version None)
Quarter: 2008Q2

REPORT INFORMATION
  Report Type: 
  Country: None (occurrence: None)
  Receive Date: 20080417
  Receipt Date: 20080411
  Transmission Date: 20081010
  Serious: Yes (Hospitalization, Disabling, Other)
  Sender: FDA-Public Use
  Company Number: US-MERCK-0705USA01533

PATIENT
  Age: 67 Year
  Sex: Female

DRUGS (1)
  1. FOSAMAX [Suspect]
     Indication: OSTEOPOROSIS
     Route: 048
     Dates: start: 20050301, end: 20060701

REACTIONS (7)
  - ADVERSE EVENT [None]
  - NEOPLASM MALIGNANT [None]
  - OSTEOMYELITIS [None]
  - PAIN IN JAW [None]
  - TEMPOROMANDIBULAR JOINT SYNDROME [None]
  - TOOTH LOSS [None]
  - TRISMUS [None]
